FAERS Safety Report 17840157 (Version 2)
Quarter: 2020Q2

REPORT INFORMATION
  Report Type: Spontaneous
  Country: US (occurrence: US)
  Receive Date: 20200529
  Receipt Date: 20200626
  Transmission Date: 20200714
  Serious: Yes (Death, Other)
  Sender: FDA-Public Use
  Company Number: US-VERTEX PHARMACEUTICALS-2020-011645

PATIENT
  Age: 27 Year
  Sex: Male

DRUGS (10)
  1. LAMOTRIGINE. [Concomitant]
     Active Substance: LAMOTRIGINE
     Indication: BORDERLINE PERSONALITY DISORDER
     Dosage: UNK
     Dates: start: 20191024
  2. LAMOTRIGINE. [Concomitant]
     Active Substance: LAMOTRIGINE
     Indication: BIPOLAR DISORDER
  3. PULMOZYME [Concomitant]
     Active Substance: DORNASE ALFA
  4. SERTRALINE [Concomitant]
     Active Substance: SERTRALINE HYDROCHLORIDE
     Indication: BIPOLAR DISORDER
  5. SYMBICORT [Concomitant]
     Active Substance: BUDESONIDE\FORMOTEROL FUMARATE DIHYDRATE
  6. ZENPEP [Concomitant]
     Active Substance: PANCRELIPASE AMYLASE\PANCRELIPASE LIPASE\PANCRELIPASE PROTEASE
  7. ALBUTEROL [SALBUTAMOL] [Concomitant]
     Active Substance: ALBUTEROL
  8. SERTRALINE [Concomitant]
     Active Substance: SERTRALINE HYDROCHLORIDE
     Indication: BORDERLINE PERSONALITY DISORDER
     Dosage: UNK
     Dates: start: 20191024
  9. TRIKAFTA [Suspect]
     Active Substance: ELEXACAFTOR\IVACAFTOR\TEZACAFTOR
     Dosage: ELEXACAFTOR 100MG /TEZACAFTOR 50MG/IVACAFTOR 75MG AM AND IVACAFTOR 150MG PM
     Route: 048
     Dates: start: 20200214, end: 202005
  10. TRIKAFTA [Suspect]
     Active Substance: ELEXACAFTOR\IVACAFTOR\TEZACAFTOR
     Indication: CYSTIC FIBROSIS
     Dosage: ELEXACAFTOR 100MG /TEZACAFTOR 50MG/IVACAFTOR 75MG AM AND IVACAFTOR 150MG PM
     Route: 048
     Dates: start: 20191230, end: 202001

REACTIONS (4)
  - Bipolar disorder [Unknown]
  - Completed suicide [Fatal]
  - Borderline personality disorder [Unknown]
  - Depression [Unknown]

NARRATIVE: CASE EVENT DATE: 20200514
